FAERS Safety Report 23178096 (Version 2)
Quarter: 2024Q1

REPORT INFORMATION
  Report Type: Spontaneous
  Country: FR (occurrence: FR)
  Receive Date: 20231113
  Receipt Date: 20240216
  Transmission Date: 20240410
  Serious: Yes (Hospitalization, Other)
  Sender: FDA-Public Use
  Company Number: FR-AFSSAPS-AVNT2023000647

PATIENT
  Age: 43 Year
  Sex: Male

DRUGS (4)
  1. PREGABALIN [Suspect]
     Active Substance: PREGABALIN
     Indication: Product used for unknown indication
     Dosage: 300 MG MORNING AND EVENING WITH EPISODES OF OVERCONSUMPTION
     Route: 048
     Dates: start: 202101
  2. BROMAZEPAM [Suspect]
     Active Substance: BROMAZEPAM
     Indication: Product used for unknown indication
     Dosage: 6 MG AT BEDTIME (PRESCRIBED) SOMETIMES MORE THAN PRESCRIBED
     Route: 048
     Dates: start: 2021
  3. CANNABIS SATIVA SUBSP. INDICA TOP [Suspect]
     Active Substance: CANNABIS SATIVA SUBSP. INDICA TOP
     Indication: Product used for unknown indication
     Dosage: 5 TO 6 JOINTS PER DAY
     Route: 055
     Dates: start: 1996
  4. TRAMADOL [Suspect]
     Active Substance: TRAMADOL\TRAMADOL HYDROCHLORIDE
     Indication: Product used for unknown indication
     Dosage: LP 100 MG 1-0-1(PRESCRIBED) +LI 50 MG IF NEEDED SOME DAYS MORE THAN PRESCRIBED
     Route: 048
     Dates: start: 2020

REACTIONS (3)
  - Overdose [Not Recovered/Not Resolved]
  - Substance use disorder [Not Recovered/Not Resolved]
  - Drug use disorder [Not Recovered/Not Resolved]
